FAERS Safety Report 18206580 (Version 1)
Quarter: 2020Q3

REPORT INFORMATION
  Report Type: Spontaneous
  Country: US (occurrence: US)
  Receive Date: 20200827
  Receipt Date: 20200827
  Transmission Date: 20201103
  Serious: Yes (Other)
  Sender: FDA-Public Use
  Company Number: None

PATIENT
  Age: 17 Year
  Sex: Female
  Weight: 105.2 kg

DRUGS (8)
  1. REMDESIVIR. [Suspect]
     Active Substance: REMDESIVIR
     Indication: COVID-19
     Route: 042
     Dates: start: 20200818, end: 20200821
  2. DEXMEDETOMIDINE INFUSION [Concomitant]
     Dates: start: 20200819, end: 20200821
  3. ENOXAPARIN [Concomitant]
     Active Substance: ENOXAPARIN
     Dates: start: 20200818, end: 20200824
  4. FUROSEMIDE INJECTION [Concomitant]
     Active Substance: FUROSEMIDE
     Dates: start: 20200820, end: 20200822
  5. SODIUM CHLORIDE 0.9% WITH KCL 20 MEQ/L [Concomitant]
     Dates: start: 20200819, end: 20200824
  6. DEXAMETHASONE INJECTION [Concomitant]
     Active Substance: DEXAMETHASONE
     Dates: start: 20200819, end: 20200824
  7. ONDANSETRON. [Concomitant]
     Active Substance: ONDANSETRON
     Dates: start: 20200820, end: 20200824
  8. LORATADINE TABLET [Concomitant]
     Active Substance: LORATADINE
     Dates: start: 20200817, end: 20200824

REACTIONS (1)
  - Alanine aminotransferase increased [None]

NARRATIVE: CASE EVENT DATE: 20200821
